FAERS Safety Report 19440285 (Version 2)
Quarter: 2021Q3

REPORT INFORMATION
  Report Type: Spontaneous
  Country: BR (occurrence: BR)
  Receive Date: 20210621
  Receipt Date: 20210729
  Transmission Date: 20211014
  Serious: No
  Sender: FDA-Public Use
  Company Number: BR-AMGEN-BRASP2021090535

PATIENT

DRUGS (1)
  1. NEUPOGEN [Suspect]
     Active Substance: FILGRASTIM
     Indication: PRODUCT USED FOR UNKNOWN INDICATION
     Dosage: 300 MICROGRAM/0.5ML
     Route: 065

REACTIONS (1)
  - Device issue [Unknown]

NARRATIVE: CASE EVENT DATE: 20210609
